FAERS Safety Report 9964051 (Version 2)
Quarter: 2014Q2

REPORT INFORMATION
  Report Type: Spontaneous
  Country: FR (occurrence: FR)
  Receive Date: 20140305
  Receipt Date: 20140502
  Transmission Date: 20141212
  Serious: Yes (Hospitalization, Other)
  Sender: FDA-Public Use
  Company Number: FR-GLAXOSMITHKLINE-B0972145A

PATIENT
  Age: 62 Year
  Sex: Female

DRUGS (3)
  1. CLAMOXYL IV [Suspect]
     Indication: MENINGITIS VIRAL
     Route: 042
     Dates: start: 20131107, end: 20131107
  2. ZOVIRAX [Suspect]
     Indication: MENINGITIS VIRAL
     Route: 042
     Dates: start: 20131107
  3. ROCEPHINE [Suspect]
     Indication: MENINGITIS VIRAL
     Route: 042
     Dates: start: 20131107, end: 20131107

REACTIONS (5)
  - Anaphylactoid shock [Recovered/Resolved]
  - Malaise [Recovered/Resolved]
  - Hypoxia [Recovered/Resolved]
  - Hypotension [Recovered/Resolved]
  - Rash [Recovered/Resolved]
